FAERS Safety Report 8501298-0 (Version None)
Quarter: 2012Q3

REPORT INFORMATION
  Report Type: 
  Country: None (occurrence: None)
  Receive Date: 20120710
  Receipt Date: 20120705
  Transmission Date: 20120928
  Serious: No
  Sender: FDA-Public Use
  Company Number: US-PFIZER INC-2012162742

PATIENT
  Sex: Female
  Weight: 111 kg

DRUGS (6)
  1. GABAPENTIN [Suspect]
     Indication: PAIN IN EXTREMITY
     Dosage: 300 MG, 3X/DAY
     Dates: start: 20080101
  2. HYDROCHLOROTHIAZIDE [Suspect]
     Indication: DIURETIC THERAPY
     Dosage: 12.5 MG, DAILY
     Dates: start: 20120406
  3. ESTRADIOL [Suspect]
     Dosage: UNK
  4. VALIUM [Suspect]
     Dosage: UNK
  5. GABAPENTIN [Suspect]
     Indication: BACK PAIN
  6. HYDROCHLOROTHIAZIDE [Suspect]
     Dosage: 25 MG, DAILY
     Dates: start: 20120525

REACTIONS (8)
  - ANXIETY [None]
  - PALPITATIONS [None]
  - INSOMNIA [None]
  - WEIGHT DECREASED [None]
  - HOT FLUSH [None]
  - MIGRAINE [None]
  - DRUG INEFFECTIVE [None]
  - PROTEIN URINE PRESENT [None]
